FAERS Safety Report 5684086-2 (Version None)
Quarter: 2008Q1

REPORT INFORMATION
  Report Type: 
  Country: None (occurrence: None)
  Receive Date: 20080328
  Receipt Date: 20070226
  Transmission Date: 20080703
  Serious: No
  Sender: FDA-Public Use
  Company Number: US-AMGEN-US200142

PATIENT
  Sex: Female
  Weight: 75.4 kg

DRUGS (9)
  1. NEULASTA [Suspect]
     Indication: CHEMOTHERAPY
     Route: 065
     Dates: start: 20061108
  2. GEMZAR [Concomitant]
     Route: 065
  3. TARCEVA [Concomitant]
     Route: 065
     Dates: start: 20061001
  4. SYNTHROID [Concomitant]
     Route: 065
  5. TOPROL-XL [Concomitant]
     Route: 065
  6. DYAZIDE [Concomitant]
     Route: 065
  7. MS CONTIN [Concomitant]
     Route: 065
  8. NITROGLYCERIN [Concomitant]
     Route: 065
  9. NITROGLYCERIN [Concomitant]
     Route: 065

REACTIONS (5)
  - CONJUNCTIVITIS [None]
  - PERIORBITAL HAEMATOMA [None]
  - RASH ERYTHEMATOUS [None]
  - RASH PRURITIC [None]
  - WEIGHT DECREASED [None]
